FAERS Safety Report 7824883-8 (Version None)
Quarter: 2011Q4

REPORT INFORMATION
  Report Type: 
  Country: None (occurrence: None)
  Receive Date: 20111019
  Receipt Date: 20110318
  Transmission Date: 20120403
  Serious: No
  Sender: FDA-Public Use
  Company Number: US-BRISTOL-MYERS SQUIBB COMPANY-15553555

PATIENT
  Age: 83 Year
  Sex: Female

DRUGS (1)
  1. AVALIDE [Suspect]
     Dosage: 1DF = AVALIDE 150/12.5 MG

REACTIONS (2)
  - BLOOD PRESSURE INCREASED [None]
  - HEADACHE [None]
